FAERS Safety Report 22617564 (Version 3)
Quarter: 2023Q2

REPORT INFORMATION
  Report Type: Spontaneous
  Country: US (occurrence: None)
  Receive Date: 20230620
  Receipt Date: 20230630
  Transmission Date: 20230722
  Serious: Yes (Other)
  Sender: FDA-Public Use
  Company Number: 2023A139291

PATIENT
  Age: 33 Year
  Sex: Male
  Weight: 64.4 kg

DRUGS (4)
  1. KOSELUGO [Suspect]
     Active Substance: SELUMETINIB
     Indication: Neurofibroma
     Route: 048
     Dates: start: 20210507
  2. KOSELUGO [Suspect]
     Active Substance: SELUMETINIB
     Indication: Neurofibroma
     Route: 048
     Dates: start: 20210525
  3. MESTINON [Concomitant]
     Active Substance: PYRIDOSTIGMINE BROMIDE
     Indication: Myasthenia gravis
     Dates: start: 20181022
  4. MESTINON [Concomitant]
     Active Substance: PYRIDOSTIGMINE BROMIDE
     Indication: Myasthenia gravis
     Dates: start: 20210318

REACTIONS (3)
  - Rhegmatogenous retinal detachment [Recovered/Resolved]
  - Subretinal fluid [Unknown]
  - Off label use [Unknown]

NARRATIVE: CASE EVENT DATE: 20230511
